FAERS Safety Report 14539933 (Version 2)
Quarter: 2018Q3

REPORT INFORMATION
  Report Type: Spontaneous
  Country: US (occurrence: US)
  Receive Date: 20180216
  Receipt Date: 20180903
  Transmission Date: 20181010
  Serious: No
  Sender: FDA-Public Use
  Company Number: US-PFIZER INC-2018059019

PATIENT
  Age: 61 Year
  Sex: Female
  Weight: 58.5 kg

DRUGS (4)
  1. LYRICA [Suspect]
     Active Substance: PREGABALIN
     Indication: NEURALGIA
     Dosage: 75 MG, TWICE DAILY
     Dates: start: 201610, end: 201711
  2. LYRICA [Suspect]
     Active Substance: PREGABALIN
     Dosage: UNK, 2X/DAY (LYRICA 100)
     Dates: start: 20170421, end: 20171031
  3. LYRICA [Suspect]
     Active Substance: PREGABALIN
     Indication: FIBROMYALGIA
     Dosage: UNK (LYRICA 50)
     Dates: start: 20161019, end: 20161214
  4. LYRICA [Suspect]
     Active Substance: PREGABALIN
     Dosage: UNK (LYRICA 75)
     Dates: start: 20161214, end: 20170421

REACTIONS (9)
  - Breast mass [Unknown]
  - Weight decreased [Unknown]
  - Drug hypersensitivity [Unknown]
  - Breast discharge [Recovered/Resolved with Sequelae]
  - Feeling hot [Recovered/Resolved]
  - Breast swelling [Recovered/Resolved]
  - Pruritus [Not Recovered/Not Resolved]
  - Nipple exudate bloody [Recovered/Resolved with Sequelae]
  - Nipple pain [Not Recovered/Not Resolved]

NARRATIVE: CASE EVENT DATE: 2017
